FAERS Safety Report 8403503-8 (Version None)
Quarter: 2012Q2

REPORT INFORMATION
  Report Type: 
  Country: None (occurrence: None)
  Receive Date: 20120601
  Receipt Date: 20120529
  Transmission Date: 20120825
  Serious: Yes (Other)
  Sender: FDA-Public Use
  Company Number: US-PFIZER INC-2012007709

PATIENT
  Sex: Male
  Weight: 66 kg

DRUGS (7)
  1. GENOTROPIN [Suspect]
     Dosage: 2.2 MG, 6DAY/WEEK
     Route: 058
     Dates: start: 20120229, end: 20120331
  2. GENOTROPIN [Suspect]
     Dosage: 2.6 MG, 1X/DAY
     Route: 058
     Dates: start: 20120501
  3. SYNTHROID [Concomitant]
     Indication: HYPOTHYROIDISM
     Dosage: 88 UG, UNK
     Dates: start: 20100308
  4. GENOTROPIN [Suspect]
     Dosage: 2 MG, 6 DAY/WEEK
     Route: 058
     Dates: start: 20120101, end: 20120228
  5. GENOTROPIN [Suspect]
     Dosage: 2.4 MG, 6DAY/WEEK
     Route: 058
     Dates: start: 20120401, end: 20120430
  6. GENOTROPIN [Suspect]
     Indication: GROWTH HORMONE DEFICIENCY
     Dosage: 2.4 MG, 6 DAY/WEEK
     Route: 058
     Dates: end: 20110101
  7. GENOTROPIN [Suspect]
     Dosage: 2.6 MG, 6 DAYS/WEEK
     Route: 058
     Dates: start: 20101001, end: 20120101

REACTIONS (4)
  - NAUSEA [None]
  - SINUSITIS [None]
  - DIZZINESS [None]
  - HEADACHE [None]
